FAERS Safety Report 9416759 (Version 1)
Quarter: 2013Q3

REPORT INFORMATION
  Report Type: Spontaneous
  Country: BG (occurrence: None)
  Receive Date: 20130722
  Receipt Date: 20130722
  Transmission Date: 20140515
  Serious: Yes (Disabling)
  Sender: FDA-Public Use
  Company Number: 2013P1011956

PATIENT
  Age: 28 Year
  Sex: Male

DRUGS (4)
  1. ETHAMBUTOL [Suspect]
     Indication: PULMONARY TUBERCULOSIS
  2. ISONIAZID [Suspect]
     Indication: PULMONARY TUBERCULOSIS
  3. PYRAZINAMIDE [Suspect]
     Indication: PULMONARY TUBERCULOSIS
  4. RIFAMPICIN [Suspect]
     Indication: PULMONARY TUBERCULOSIS

REACTIONS (4)
  - Anaemia [None]
  - Demyelinating polyneuropathy [None]
  - Mitochondrial neurogastrointestinal encephalopathy [None]
  - Mitochondrial toxicity [None]
